FAERS Safety Report 24266540 (Version 1)
Quarter: 2024Q3

REPORT INFORMATION
  Report Type: Spontaneous
  Country: FR (occurrence: FR)
  Receive Date: 20240830
  Receipt Date: 20240830
  Transmission Date: 20241016
  Serious: Yes (Other)
  Sender: CHEPLAPHARM
  Company Number: None

PATIENT
  Age: 85 Year
  Sex: Male
  Weight: 81 kg

DRUGS (9)
  1. HYDROXYUREA [Suspect]
     Active Substance: HYDROXYUREA
     Indication: Essential thrombocythaemia
     Dosage: DAILY DOSE: 500 MILLIGRAM
     Route: 048
     Dates: start: 20220422
  2. HYDROXYUREA [Suspect]
     Active Substance: HYDROXYUREA
     Indication: Essential thrombocythaemia
     Dosage: DAILY DOSE: 1 DOSAGE FORM
     Route: 048
  3. HYDROXYUREA [Suspect]
     Active Substance: HYDROXYUREA
     Indication: Essential thrombocythaemia
     Dosage: ALTERNATING WITH 2 TABLETS EVERY OTHER DAY
     Route: 048
  4. CANDESARTAN [Suspect]
     Active Substance: CANDESARTAN
     Dosage: DAILY DOSE: 32 MILLIGRAM
     Dates: start: 2021
  5. CANDESARTAN [Suspect]
     Active Substance: CANDESARTAN
     Dosage: DAILY DOSE: 16 MILLIGRAM
  6. KARDEGIC [Concomitant]
     Active Substance: ASPIRIN DL-LYSINE
     Dosage: DAILY DOSE: 160 MILLIGRAM
     Dates: start: 202110
  7. METFORMIN [Concomitant]
     Active Substance: METFORMIN HYDROCHLORIDE
     Dosage: DAILY DOSE: 3 GRAM
     Dates: start: 2017
  8. METFORMIN [Concomitant]
     Active Substance: METFORMIN HYDROCHLORIDE
     Dosage: DAILY DOSE: 1.5 GRAM
  9. REPAGLINIDE [Concomitant]
     Active Substance: REPAGLINIDE
     Dates: start: 2021

REACTIONS (1)
  - Renal failure [Not Recovered/Not Resolved]

NARRATIVE: CASE EVENT DATE: 20240101
